FAERS Safety Report 6969015-3 (Version None)
Quarter: 2010Q3

REPORT INFORMATION
  Report Type: 
  Country: None (occurrence: None)
  Receive Date: 20100903
  Receipt Date: 20100903
  Transmission Date: 20110219
  Serious: Yes (Life-Threatening, Hospitalization, Disabling)
  Sender: FDA-Public Use
  Company Number: None

PATIENT
  Age: 66 Year
  Sex: Female
  Weight: 63.5036 kg

DRUGS (2)
  1. FOSAMAX [Suspect]
     Indication: OSTEOPENIA
     Dosage: 70 MG WEEKLY BY MOUTH
     Dates: start: 20020401, end: 20071201
  2. BONIVA [Suspect]
     Indication: OSTEOPENIA
     Dosage: 150 MG MONTHLY BY MOUTH
     Dates: start: 20071201, end: 20100601

REACTIONS (1)
  - FEMUR FRACTURE [None]
